FAERS Safety Report 26032449 (Version 1)
Quarter: 2025Q4

REPORT INFORMATION
  Report Type: Spontaneous
  Country: US (occurrence: US)
  Receive Date: 20251112
  Receipt Date: 20251112
  Transmission Date: 20260117
  Serious: Yes (Other)
  Sender: COOPERSURGICAL
  Company Number: US-COOPERSURGICAL, INC.-2025CPS007861

PATIENT
  Age: 19 Year
  Sex: Female
  Weight: 73.923 kg

DRUGS (1)
  1. PARAGARD T 380A [Suspect]
     Active Substance: COPPER
     Indication: Contraception
     Dosage: UNK
     Route: 015
     Dates: start: 20090601, end: 20190125

REACTIONS (20)
  - Reproductive complication associated with device [Unknown]
  - Surgery [Recovered/Resolved]
  - Uterine leiomyoma [Unknown]
  - Infertility female [Not Recovered/Not Resolved]
  - Device breakage [Recovered/Resolved]
  - Foreign body in reproductive tract [Recovered/Resolved]
  - Complication of device removal [Recovered/Resolved]
  - Embedded device [Recovered/Resolved]
  - Pelvic inflammatory disease [Unknown]
  - Uterine enlargement [Unknown]
  - Emotional distress [Unknown]
  - Urinary tract infection [Unknown]
  - Device dislocation [Recovered/Resolved]
  - Abnormal uterine bleeding [Not Recovered/Not Resolved]
  - Abdominal pain lower [Unknown]
  - Vaginal discharge [Unknown]
  - Intermenstrual bleeding [Unknown]
  - Anaemia [Unknown]
  - Vaginal infection [Unknown]
  - Heavy menstrual bleeding [Unknown]

NARRATIVE: CASE EVENT DATE: 20110101
